FAERS Safety Report 22302474 (Version 5)
Quarter: 2023Q4

REPORT INFORMATION
  Report Type: Spontaneous
  Country: JP (occurrence: None)
  Receive Date: 20230510
  Receipt Date: 20231019
  Transmission Date: 20240109
  Serious: Yes (Disabling)
  Sender: FDA-Public Use
  Company Number: 2023A106481

PATIENT
  Age: 59 Year
  Sex: Female
  Weight: 78 kg

DRUGS (8)
  1. ONDEXXYA [Suspect]
     Active Substance: ANDEXANET ALFA
     Indication: Cerebral haemorrhage
     Dosage: 880.0MG UNKNOWN
     Route: 042
     Dates: start: 20230423, end: 20230423
  2. TRANSAMIN [Suspect]
     Active Substance: TRANEXAMIC ACID
     Indication: Cerebral haemorrhage
     Dosage: 1 G/10 ML EVERY DAY
     Route: 042
     Dates: start: 20230423, end: 20230423
  3. ELIQUIS [Concomitant]
     Active Substance: APIXABAN
     Indication: Atrial fibrillation
     Route: 048
     Dates: end: 20230423
  4. URSODIOL [Concomitant]
     Active Substance: URSODIOL
     Dosage: DOSE UNKNOWN
     Route: 048
     Dates: end: 20230423
  5. PILSICAINIDE HYDROCHLORIDE HEMIHYDRATE [Concomitant]
     Active Substance: PILSICAINIDE HYDROCHLORIDE HEMIHYDRATE
     Indication: Atrial fibrillation
     Dosage: DOSE UNKNOWN
     Route: 048
     Dates: end: 20230423
  6. DILTIAZEM HYDROCHLORIDE [Concomitant]
     Active Substance: DILTIAZEM HYDROCHLORIDE
     Indication: Hypertension
     Dosage: DOSE UNKNOWN
     Route: 048
     Dates: end: 20230423
  7. LANSOPRAZOLE [Concomitant]
     Active Substance: LANSOPRAZOLE
     Dosage: DOSE UNKNOWN
     Route: 048
     Dates: end: 20230423
  8. NICARDIPINE HYDROCHLORIDE [Concomitant]
     Active Substance: NICARDIPINE HYDROCHLORIDE
     Indication: Hypertension
     Dosage: DOSE UNKNOWN
     Route: 041
     Dates: start: 20230423, end: 20230423

REACTIONS (1)
  - Cerebral infarction [Not Recovered/Not Resolved]

NARRATIVE: CASE EVENT DATE: 20230423
